FAERS Safety Report 4738307-0 (Version None)
Quarter: 2005Q3

REPORT INFORMATION
  Report Type: 
  Country: None (occurrence: None)
  Receive Date: 20050803
  Receipt Date: 20050726
  Transmission Date: 20060218
  Serious: Yes (Life-Threatening, Hospitalization)
  Sender: FDA-Public Use
  Company Number: GBWYE860227JUL05

PATIENT
  Age: 29 Year
  Sex: Female

DRUGS (1)
  1. EFFEXOR [Suspect]
     Indication: DEPRESSION
     Dosage: 225 MG
     Route: 048
     Dates: end: 20030601

REACTIONS (3)
  - INTERMITTENT CLAUDICATION [None]
  - PERIPHERAL EMBOLISM [None]
  - PULMONARY EMBOLISM [None]
